FAERS Safety Report 9699265 (Version 1)
Quarter: 2013Q4

REPORT INFORMATION
  Report Type: Spontaneous
  Country: US (occurrence: US)
  Receive Date: 20131120
  Receipt Date: 20131120
  Transmission Date: 20140711
  Serious: No
  Sender: FDA-Public Use
  Company Number: US-GILEAD-2008-0015333

PATIENT
  Sex: Male
  Weight: 99.79 kg

DRUGS (29)
  1. LETAIRIS [Suspect]
     Indication: PULMONARY ARTERIAL HYPERTENSION
     Route: 048
     Dates: start: 20080122
  2. PRIMIDONE [Concomitant]
     Route: 048
  3. SPIRONOLACTONE [Concomitant]
     Route: 048
  4. PRAVASTATIN [Concomitant]
     Route: 048
  5. TRIMETHOPRIM [Concomitant]
     Route: 048
  6. METOLAZONE [Concomitant]
     Route: 048
  7. GLIMEPIRIDE [Concomitant]
     Route: 048
  8. CAPTOPRIL [Concomitant]
     Route: 048
  9. NIFEDIPINE ER [Concomitant]
     Route: 048
  10. NIFEDIPINE ER [Concomitant]
     Route: 048
  11. DIGOXIN [Concomitant]
     Route: 048
  12. LASIX [Concomitant]
     Route: 048
  13. ASPIRIN [Concomitant]
     Route: 048
  14. METFORMIN [Concomitant]
     Route: 048
  15. GLUMETZA ER [Concomitant]
     Route: 048
  16. AVODART [Concomitant]
     Route: 048
  17. TESTIM [Concomitant]
     Route: 048
  18. AVANDRYL [Concomitant]
     Route: 048
  19. ANTIVERT [Concomitant]
     Route: 048
  20. NEURONTIN [Concomitant]
     Route: 048
  21. GEMFIBROZIL [Concomitant]
     Route: 048
  22. TERAZOSIN [Concomitant]
     Route: 048
  23. SIMVASTATIN [Concomitant]
     Route: 048
  24. ZETIA [Concomitant]
     Route: 048
  25. LEXAPRO [Concomitant]
     Route: 048
  26. CYMBALTA [Concomitant]
     Route: 048
  27. DIAZEPAM [Concomitant]
     Route: 048
  28. VALIUM [Concomitant]
     Route: 048
  29. POTASSIUM [Concomitant]
     Route: 048

REACTIONS (1)
  - Insomnia [Unknown]
